FAERS Safety Report 5673565-X (Version None)
Quarter: 2008Q1

REPORT INFORMATION
  Report Type: 
  Country: None (occurrence: None)
  Receive Date: 20080319
  Receipt Date: 20080310
  Transmission Date: 20080703
  Serious: Yes (Other)
  Sender: FDA-Public Use
  Company Number: CH-ABBOTT-08P-151-0435101-00

PATIENT
  Sex: Female

DRUGS (1)
  1. HUMIRA [Suspect]
     Indication: CROHN'S DISEASE
     Dates: end: 20080201

REACTIONS (4)
  - ALOPECIA [None]
  - ARTHRITIS [None]
  - LUPUS-LIKE SYNDROME [None]
  - PSORIASIS [None]
